FAERS Safety Report 17794448 (Version 1)
Quarter: 2020Q2

REPORT INFORMATION
  Report Type: Report from Study
  Country: US (occurrence: US)
  Receive Date: 20200516
  Receipt Date: 20200516
  Transmission Date: 20200714
  Serious: No
  Sender: FDA-Public Use
  Company Number: NVSC2020US133470

PATIENT
  Sex: Female

DRUGS (1)
  1. COSENTYX [Suspect]
     Active Substance: SECUKINUMAB
     Indication: PSORIATIC ARTHROPATHY
     Dosage: UNK UNK, OT (BENEATH THE SKIN USUALLY VIA INJECTION
     Route: 058

REACTIONS (3)
  - Throat irritation [Unknown]
  - Headache [Unknown]
  - Rhinorrhoea [Unknown]
